FAERS Safety Report 18001133 (Version 1)
Quarter: 2020Q3

REPORT INFORMATION
  Report Type: Spontaneous
  Country: US (occurrence: US)
  Receive Date: 20200709
  Receipt Date: 20200709
  Transmission Date: 20201103
  Serious: No
  Sender: FDA-Public Use
  Company Number: US-TEVA-2020-US-1799593

PATIENT
  Age: 31 Year
  Sex: Female

DRUGS (1)
  1. SPRINTEC [Suspect]
     Active Substance: ETHINYL ESTRADIOL\NORGESTIMATE
     Indication: CONTRACEPTION

REACTIONS (6)
  - Nausea [Unknown]
  - Feeding disorder [Unknown]
  - Headache [Unknown]
  - Vomiting [Unknown]
  - Breast tenderness [Unknown]
  - Abdominal pain upper [Unknown]
